FAERS Safety Report 20371936 (Version 1)
Quarter: 2022Q1

REPORT INFORMATION
  Report Type: Spontaneous
  Country: US (occurrence: US)
  Receive Date: 20220124
  Receipt Date: 20220124
  Transmission Date: 20220424
  Serious: No
  Sender: FDA-Public Use
  Company Number: US-ANIPHARMA-2021-US-015996

PATIENT
  Age: 70 Year
  Sex: Female

DRUGS (7)
  1. REGLAN [Suspect]
     Active Substance: METOCLOPRAMIDE HYDROCHLORIDE
     Indication: Product used for unknown indication
  2. SYNTHROID [Concomitant]
     Active Substance: LEVOTHYROXINE SODIUM
  3. NAPROSYN [Concomitant]
     Active Substance: NAPROXEN
  4. DELTASONE [Concomitant]
     Active Substance: PREDNISONE
     Route: 065
  5. LYRICA [Concomitant]
     Active Substance: PREGABALIN
  6. BACTRIM DS [Concomitant]
     Active Substance: SULFAMETHOXAZOLE\TRIMETHOPRIM
  7. PLAQUENIL [Concomitant]
     Active Substance: HYDROXYCHLOROQUINE SULFATE
     Route: 065

REACTIONS (1)
  - Diarrhoea [Unknown]
